FAERS Safety Report 9594187 (Version 1)
Quarter: 2013Q3

REPORT INFORMATION
  Report Type: Spontaneous
  Country: US (occurrence: None)
  Receive Date: 20130930
  Receipt Date: 20130930
  Transmission Date: 20140515
  Serious: No
  Sender: FDA-Public Use
  Company Number: 1000048187

PATIENT
  Age: 76 Year
  Sex: Female

DRUGS (3)
  1. LINZESS [Suspect]
     Indication: CONSTIPATION
     Dosage: 290MCG (290 MCG, 1 IN 1 D), ORAL
     Route: 048
     Dates: start: 20130725, end: 20130823
  2. AMLODIPINE (AMLODIPINE) (AMLODIPINE) [Concomitant]
  3. LOSARTAN (LOSARTAN) (LOSARTAN) [Concomitant]

REACTIONS (1)
  - Skin discolouration [None]
